FAERS Safety Report 8373243-2 (Version None)
Quarter: 2012Q2

REPORT INFORMATION
  Report Type: 
  Country: None (occurrence: None)
  Receive Date: 20120521
  Receipt Date: 20120510
  Transmission Date: 20120825
  Serious: Yes (Other)
  Sender: FDA-Public Use
  Company Number: JP-VERTEX PHARMACEUTICALS INC.-AE-2012-007097

PATIENT
  Age: 67 Year
  Sex: Male

DRUGS (10)
  1. CLARITIN REDITABS [Concomitant]
     Route: 048
  2. PEGINTERFERON ALFA-2B [Concomitant]
     Route: 051
     Dates: start: 20120404
  3. EPADEL S [Concomitant]
     Route: 048
  4. TELAVIC (TELAPREVIR) [Suspect]
     Route: 048
     Dates: start: 20120404
  5. LIVALO [Concomitant]
     Route: 048
  6. TELAVIC (TELAPREVIR) [Suspect]
     Indication: HEPATITIS C
     Route: 048
     Dates: start: 20120306, end: 20120322
  7. RIBAVIRIN [Concomitant]
     Route: 048
     Dates: start: 20120306, end: 20120322
  8. PEGINTERFERON ALFA-2B [Concomitant]
     Route: 051
     Dates: start: 20120306, end: 20120314
  9. FEROTYM [Concomitant]
     Route: 048
  10. RIBAVIRIN [Concomitant]
     Route: 048
     Dates: start: 20120404

REACTIONS (1)
  - PYELONEPHRITIS [None]
